FAERS Safety Report 13648649 (Version 2)
Quarter: 2017Q4

REPORT INFORMATION
  Report Type: Report from Study
  Country: BR (occurrence: BR)
  Receive Date: 20170613
  Receipt Date: 20171220
  Transmission Date: 20180320
  Serious: Yes (Hospitalization, Other)
  Sender: FDA-Public Use
  Company Number: PHHY2017BR066452

PATIENT
  Sex: Male
  Weight: 33 kg

DRUGS (3)
  1. EXJADE [Suspect]
     Active Substance: DEFERASIROX
     Indication: CONGENITAL APLASTIC ANAEMIA
     Dosage: 750 MG, QD
     Route: 048
     Dates: end: 201705
  2. BACTRIM [Concomitant]
     Active Substance: SULFAMETHOXAZOLE\TRIMETHOPRIM
     Indication: IRON METABOLISM DISORDER
     Route: 065
  3. URSACOL [Concomitant]
     Active Substance: URSODIOL
     Indication: IRON METABOLISM DISORDER
     Route: 065

REACTIONS (6)
  - Oral fungal infection [Unknown]
  - Transplant rejection [Unknown]
  - Renal disorder [Unknown]
  - Gingival disorder [Unknown]
  - Serum ferritin increased [Unknown]
  - Drug ineffective [Unknown]
